FAERS Safety Report 8123544-8 (Version None)
Quarter: 2012Q1

REPORT INFORMATION
  Report Type: 
  Country: None (occurrence: None)
  Receive Date: 20120208
  Receipt Date: 20120201
  Transmission Date: 20120608
  Serious: Yes (Disabling)
  Sender: FDA-Public Use
  Company Number: PHEH2012US002597

PATIENT
  Sex: Female
  Weight: 90.703 kg

DRUGS (3)
  1. FAMPRIDINE [Concomitant]
     Dosage: UNK UKN, UNK
  2. STEROIDS NOS [Concomitant]
     Dosage: UNK UKN, UNK
  3. GILENYA [Suspect]
     Indication: MULTIPLE SCLEROSIS
     Dosage: 0.5 MG, QD
     Route: 048
     Dates: start: 20100917, end: 20111215

REACTIONS (6)
  - MUSCULAR WEAKNESS [None]
  - DRUG INEFFECTIVE [None]
  - PARAESTHESIA [None]
  - HYPOAESTHESIA [None]
  - FALL [None]
  - BALANCE DISORDER [None]
